FAERS Safety Report 8869371 (Version 1)
Quarter: 2012Q4

REPORT INFORMATION
  Report Type: 
  Country: US (occurrence: US)
  Receive Date: 20121023
  Receipt Date: 20121023
  Transmission Date: 20130627
  Serious: No
  Sender: FDA-Public Use
  Company Number: US-AMGEN-USASP2012052756

PATIENT
  Age: 55 Year
  Sex: Female
  Weight: 71.2 kg

DRUGS (11)
  1. ENBREL [Suspect]
     Indication: PRODUCT USED FOR UNKNOWN INDICATION
     Dosage: 50 mg, qwk
     Route: 058
  2. TRAZODONE [Concomitant]
     Dosage: 50 mg,
  3. VITAMIN E                          /00110501/ [Concomitant]
     Dosage: 1000 unit,
  4. BUPROPION HCL [Concomitant]
     Dosage: 300 mg,
  5. MULTIVITAMINS, PLAIN [Concomitant]
     Dosage: UNK,
  6. MINERALS NOS [Concomitant]
     Dosage: UNK
  7. VITAMIN D /00107901/ [Concomitant]
     Dosage: 1000 unit,
  8. ADDERALL [Concomitant]
     Dosage: 30 mg,
  9. VITAMIN B12                        /00056201/ [Concomitant]
     Dosage: 1000 UNK,
  10. CALCIUM + VITAMIN D                /01817601/ [Concomitant]
     Dosage: UNK,
  11. MAGNESIUM [Concomitant]
     Dosage: 500 mg,

REACTIONS (2)
  - Sinus congestion [Unknown]
  - Throat tightness [Unknown]
